FAERS Safety Report 12782255 (Version 1)
Quarter: 2016Q3

REPORT INFORMATION
  Report Type: Report from Study
  Country: US (occurrence: US)
  Receive Date: 20160927
  Receipt Date: 20160927
  Transmission Date: 20161109
  Serious: Yes (Other)
  Sender: FDA-Public Use
  Company Number: US-BEH-2009020583

PATIENT
  Age: 65 Year
  Sex: Male

DRUGS (5)
  1. IVIG LYOPHILIZED [Suspect]
     Active Substance: HUMAN IMMUNOGLOBULIN G
     Indication: BLOOD IMMUNOGLOBULIN G DECREASED
  2. CEFOPERAZONE [Concomitant]
     Active Substance: CEFOPERAZONE
     Indication: PNEUMONIA
  3. AVELOX [Concomitant]
     Active Substance: MOXIFLOXACIN HYDROCHLORIDE
     Indication: PNEUMONIA
  4. IVIG LYOPHILIZED [Suspect]
     Active Substance: HUMAN IMMUNOGLOBULIN G
     Indication: WALDENSTROM^S MACROGLOBULINAEMIA
     Route: 042
     Dates: start: 20070306, end: 20070306
  5. ZITHROMAX [Concomitant]
     Active Substance: AZITHROMYCIN DIHYDRATE
     Indication: PNEUMONIA

REACTIONS (11)
  - Respiratory tract congestion [Unknown]
  - Urticaria [Unknown]
  - Respiratory distress [Unknown]
  - Tachycardia [Unknown]
  - Cough [Unknown]
  - Mental status changes [Unknown]
  - Hypersensitivity [Unknown]
  - Dyspnoea [Unknown]
  - Pyrexia [Unknown]
  - Hypotension [Unknown]
  - Chills [Unknown]

NARRATIVE: CASE EVENT DATE: 20070306
